FAERS Safety Report 24903205 (Version 2)
Quarter: 2025Q1

REPORT INFORMATION
  Report Type: Spontaneous
  Country: BR (occurrence: BR)
  Receive Date: 20250130
  Receipt Date: 20250210
  Transmission Date: 20250408
  Serious: Yes (Other)
  Sender: ASTELLAS
  Company Number: BR-ASTELLAS-2025-AER-005131

PATIENT
  Age: 85 Year
  Sex: Male

DRUGS (2)
  1. MYRBETRIQ [Suspect]
     Active Substance: MIRABEGRON
     Indication: Urinary incontinence
     Dosage: USES AT 5PM (1 TABLET/DAY)
     Route: 065
  2. IMPERE [Concomitant]
     Indication: Product used for unknown indication
     Route: 065

REACTIONS (1)
  - Renal cancer [Recovered/Resolved]
